FAERS Safety Report 10589547 (Version 2)
Quarter: 2014Q4

REPORT INFORMATION
  Report Type: Spontaneous
  Country: IT (occurrence: None)
  Receive Date: 20141114
  Receipt Date: 20141126
  Transmission Date: 20150529
  Serious: Yes (Hospitalization)
  Sender: FDA-Public Use
  Company Number: 2616167

PATIENT
  Age: 60 Year
  Sex: Male

DRUGS (2)
  1. CYTARABINE. [Suspect]
     Active Substance: CYTARABINE
     Indication: ACUTE LYMPHOCYTIC LEUKAEMIA
     Dosage: 7360 MG MILLIGRAM, UNKNOWN, INTRAVENOUS
     Route: 042
     Dates: start: 20141012, end: 20141013
  2. METHOTREXATE [Suspect]
     Active Substance: METHOTREXATE
     Indication: ACUTE LYMPHOCYTIC LEUKAEMIA
     Dosage: 5500 MG, MILLIGRAM, TOTAL
     Route: 042
     Dates: start: 20141011, end: 20141011

REACTIONS (5)
  - Oropharyngeal pain [None]
  - Odynophagia [None]
  - Stomatitis [None]
  - Pyrexia [None]
  - Candida test positive [None]

NARRATIVE: CASE EVENT DATE: 20141022
